FAERS Safety Report 8465670-X (Version None)
Quarter: 2012Q2

REPORT INFORMATION
  Report Type: 
  Country: None (occurrence: None)
  Receive Date: 20120626
  Receipt Date: 20120618
  Transmission Date: 20120825
  Serious: Yes (Hospitalization)
  Sender: FDA-Public Use
  Company Number: CA-B.I. PHARMACEUTICALS,INC./RIDGEFIELD-2012-CN-01192CN

PATIENT
  Age: 88 Year
  Sex: Female

DRUGS (3)
  1. ACE INHIBITOR [Concomitant]
  2. PRADAXA [Suspect]
     Indication: ATRIAL FIBRILLATION
     Dosage: 220 MG
     Dates: start: 20110501, end: 20111201
  3. METFORMIN HCL [Concomitant]

REACTIONS (1)
  - RENAL FAILURE ACUTE [None]
